FAERS Safety Report 7915342-2 (Version None)
Quarter: 2011Q4

REPORT INFORMATION
  Report Type: 
  Country: None (occurrence: None)
  Receive Date: 20111115
  Receipt Date: 20111107
  Transmission Date: 20120403
  Serious: Yes (Other)
  Sender: FDA-Public Use
  Company Number: PHHY2011US37263

PATIENT
  Sex: Male
  Weight: 75 kg

DRUGS (11)
  1. ANTIHYPERTENSIVE DRUGS [Concomitant]
  2. BETAPACE [Concomitant]
     Indication: ATRIAL FIBRILLATION
  3. GLEEVEC [Suspect]
     Indication: GASTROINTESTINAL STROMAL TUMOUR
     Dosage: 400 MG, DAILY
     Route: 048
  4. MONOPRIL [Concomitant]
  5. ANTICOAGULANTS [Concomitant]
  6. GLUCOVANCE [Concomitant]
     Indication: DIABETES MELLITUS
  7. GLEEVEC [Suspect]
     Indication: GASTRIC NEOPLASM
     Dosage: 400 MG, DAILY
     Route: 048
     Dates: start: 20110411
  8. GLEEVEC [Suspect]
     Indication: GASTRIC CANCER
     Dosage: 200 MG, DAILY
     Route: 048
  9. GLEEVEC [Suspect]
     Dosage: 200 MG, EVERY OTHER DAY
     Route: 048
     Dates: start: 20110427
  10. COUMADIN [Concomitant]
  11. HYDROCHLOROTHIAZIDE [Concomitant]

REACTIONS (10)
  - HYPOTENSION [None]
  - COMPRESSION FRACTURE [None]
  - PAIN [None]
  - DIARRHOEA [None]
  - DIZZINESS [None]
  - FATIGUE [None]
  - HYPOGLYCAEMIA [None]
  - FALL [None]
  - VISION BLURRED [None]
  - NAUSEA [None]
